FAERS Safety Report 7207293-6 (Version None)
Quarter: 2011Q1

REPORT INFORMATION
  Report Type: 
  Country: None (occurrence: None)
  Receive Date: 20110103
  Receipt Date: 20101223
  Transmission Date: 20110831
  Serious: Yes (Other)
  Sender: FDA-Public Use
  Company Number: US-JNJFOC-20101208580

PATIENT
  Sex: Male
  Weight: 12.7 kg

DRUGS (9)
  1. REMICADE [Suspect]
     Indication: CROHN'S DISEASE
     Route: 042
  2. PROBIOTICS [Concomitant]
  3. PREDNISONE [Concomitant]
  4. FERROUS SULFATE [Concomitant]
  5. PREVACID [Concomitant]
  6. ANTIBIOTICS [Concomitant]
     Indication: CROHN'S DISEASE
  7. DEXTRAN INJ [Concomitant]
  8. MULTI-VITAMINS [Concomitant]
  9. MESALAMINE [Concomitant]

REACTIONS (1)
  - HAEMORRHAGIC ANAEMIA [None]
